FAERS Safety Report 12673923 (Version 1)
Quarter: 2016Q3

REPORT INFORMATION
  Report Type: Spontaneous
  Country: US (occurrence: US)
  Receive Date: 20160822
  Receipt Date: 20160822
  Transmission Date: 20161109
  Serious: No
  Sender: FDA-Public Use
  Company Number: US-BEH-2016071912

PATIENT
  Age: 6 Year
  Sex: Female

DRUGS (2)
  1. HAEMATE P [Suspect]
     Active Substance: ANTIHEMOPHILIC FACTOR HUMAN
     Indication: VON WILLEBRAND^S DISEASE
     Dosage: 1000 IU, QW
     Route: 042
     Dates: start: 201312
  2. HAEMATE P [Suspect]
     Active Substance: ANTIHEMOPHILIC FACTOR HUMAN
     Dosage: 1000 IU, QD
     Route: 042
     Dates: start: 20131210

REACTIONS (2)
  - Treatment noncompliance [Unknown]
  - Tongue haemorrhage [Unknown]
